FAERS Safety Report 21715187 (Version 1)
Quarter: 2022Q4

REPORT INFORMATION
  Report Type: Spontaneous
  Country: JP (occurrence: JP)
  Receive Date: 20221212
  Receipt Date: 20221212
  Transmission Date: 20230112
  Serious: Yes (Other)
  Sender: FDA-Public Use
  Company Number: JP-GLAXOSMITHKLINE-JP2022JPN182112

PATIENT

DRUGS (1)
  1. FLOLAN [Suspect]
     Active Substance: EPOPROSTENOL SODIUM
     Indication: Pulmonary arterial hypertension
     Dosage: UNK
     Route: 042
     Dates: start: 2010

REACTIONS (8)
  - Hyperthyroidism [Unknown]
  - Basedow^s disease [Unknown]
  - Endocrine ophthalmopathy [Unknown]
  - Exophthalmos [Unknown]
  - Goitre [Unknown]
  - Eye pain [Unknown]
  - Eye pain [Unknown]
  - Conjunctival hyperaemia [Unknown]

NARRATIVE: CASE EVENT DATE: 20150101
